FAERS Safety Report 8776263 (Version 2)
Quarter: 2013Q4

REPORT INFORMATION
  Report Type: Report from Study
  Country: US (occurrence: US)
  Receive Date: 20120910
  Receipt Date: 20131108
  Transmission Date: 20140711
  Serious: Yes (Other)
  Sender: FDA-Public Use
  Company Number: US-009507513-2012SP010883

PATIENT
  Sex: Male

DRUGS (3)
  1. VICTRELIS [Suspect]
     Indication: HEPATITIS C
     Dosage: UNK UNK, UNKNOWN
     Dates: start: 20120210, end: 20120220
  2. PEGASYS [Suspect]
     Indication: HEPATITIS C
     Dosage: UNK
     Dates: start: 20120127, end: 20120220
  3. RIBAVIRIN [Suspect]
     Indication: HEPATITIS C
     Dosage: UNK
     Dates: start: 20120127, end: 20120220

REACTIONS (8)
  - Micturition disorder [Unknown]
  - Confusional state [Unknown]
  - Lower respiratory tract infection [Unknown]
  - Pain [Unknown]
  - Vomiting [Unknown]
  - Depression [Unknown]
  - Laziness [Unknown]
  - Irritability [Unknown]
